FAERS Safety Report 7380307-9 (Version None)
Quarter: 2011Q1

REPORT INFORMATION
  Report Type: 
  Country: None (occurrence: None)
  Receive Date: 20110329
  Receipt Date: 20110318
  Transmission Date: 20110831
  Serious: Yes (Hospitalization)
  Sender: FDA-Public Use
  Company Number: JP-ELI_LILLY_AND_COMPANY-JP201103004682

PATIENT
  Age: 75 Year
  Sex: Female

DRUGS (14)
  1. LIPOVAS /00848101/ [Concomitant]
     Dosage: 5 MG, UNK
  2. FERROUS CITRATE [Concomitant]
     Dosage: 50 MG, UNK
  3. ROZEREM [Concomitant]
     Indication: DEPRESSION
     Dosage: 8 MG, DAILY (1/D)
     Route: 048
     Dates: start: 20110207, end: 20110301
  4. OMEPRAL [Concomitant]
     Dosage: 20 MG, UNK
  5. PURSENNID [Concomitant]
     Dosage: 24 MG, UNK
  6. NU-LOTAN [Concomitant]
     Dosage: 50 MG, UNK
  7. RENIVACE [Concomitant]
     Dosage: 2.5 MG, UNK
  8. ALFAROL [Concomitant]
     Dosage: 0.5 UG, UNK
  9. CYMBALTA [Suspect]
     Indication: DEPRESSION
     Dosage: 20 MG, DAILY (1/D)
     Route: 048
     Dates: start: 20110302, end: 20110308
  10. NEORAL [Concomitant]
     Dosage: 25 MG, UNK
  11. BERIZYM [Concomitant]
     Dosage: 3 G, UNK
  12. WARFARIN [Concomitant]
     Dosage: 1.5 MG, DAILY (1/D)
     Route: 048
     Dates: end: 20110301
  13. MAGMITT [Concomitant]
     Dosage: 660 MG, UNK
  14. PREDONINE [Concomitant]
     Indication: DERMATOMYOSITIS
     Dosage: 30 MG, DAILY (1/D)
     Route: 048

REACTIONS (10)
  - BRADYCARDIA [None]
  - DRUG INTERACTION [None]
  - DISORIENTATION [None]
  - BRAIN STEM ISCHAEMIA [None]
  - DRUG LEVEL INCREASED [None]
  - HYPONATRAEMIA [None]
  - URINARY RETENTION [None]
  - METABOLIC ALKALOSIS [None]
  - SOMNOLENCE [None]
  - HALLUCINATION [None]
